FAERS Safety Report 9981845 (Version 1)
Quarter: 2014Q1

REPORT INFORMATION
  Report Type: Report from Study
  Country: US (occurrence: US)
  Receive Date: 20140307
  Receipt Date: 20140307
  Transmission Date: 20141002
  Serious: No
  Sender: FDA-Public Use
  Company Number: US-ABBVIE-13P-163-1179301-00

PATIENT
  Age: 42 Year
  Sex: Female

DRUGS (26)
  1. HUMIRA [Suspect]
     Indication: RHEUMATOID ARTHRITIS
     Dosage: INITIAL DOSE
     Dates: start: 20131129
  2. HUMIRA [Suspect]
     Indication: VASCULITIS
  3. FISH OIL [Concomitant]
     Indication: PRODUCT USED FOR UNKNOWN INDICATION
     Dosage: DAILY
  4. VITAMIN D [Concomitant]
     Indication: PRODUCT USED FOR UNKNOWN INDICATION
     Dosage: DAILY
  5. VITAMIN B COMPLEX [Concomitant]
     Indication: PRODUCT USED FOR UNKNOWN INDICATION
     Dosage: DAILY
  6. GLUCOSAMINE/CHONDROITIN [Concomitant]
     Indication: PRODUCT USED FOR UNKNOWN INDICATION
     Dosage: DAILY
  7. VITAMIN E [Concomitant]
     Indication: PRODUCT USED FOR UNKNOWN INDICATION
     Dosage: DAILY
  8. ALFALFA [Concomitant]
     Indication: PHYTOTHERAPY
     Dosage: DAILY
  9. POTASSIUM [Concomitant]
     Indication: PRODUCT USED FOR UNKNOWN INDICATION
     Dosage: DAILY
  10. IRON W/VITAMIN C [Concomitant]
     Indication: PRODUCT USED FOR UNKNOWN INDICATION
     Dosage: DAILY
  11. METABOLIC VITAMIN [Concomitant]
     Indication: WEIGHT DECREASED
     Dosage: DAILY
  12. CRESTOR [Concomitant]
     Indication: BLOOD CHOLESTEROL INCREASED
     Dosage: DAILY
  13. PLAQUENIL [Concomitant]
     Indication: VASCULITIS
     Dosage: DAILY
  14. SEROQUEL [Concomitant]
     Indication: DEPRESSION
     Dosage: DAILY
  15. ABILIFY [Concomitant]
     Indication: DEPRESSION
     Dosage: DAILY
  16. LAMOTRIGINE [Concomitant]
     Indication: DEPRESSION
     Dosage: DAILY
  17. TORSEMIDE [Concomitant]
     Indication: SWELLING
     Dosage: DAILY
  18. SPIRONOLACTONE [Concomitant]
     Indication: SWELLING
     Dosage: DAILY
  19. LEVOTHYROXINE [Concomitant]
     Indication: HYPOTHYROIDISM
     Dosage: DAILY
  20. DIOVAN [Concomitant]
     Indication: HYPERTENSION
     Dosage: DAILY
  21. DIOVAN [Concomitant]
     Indication: NEPHROPROTECTIVE THERAPY
  22. CITALOPRAM [Concomitant]
     Indication: DEPRESSION
     Dosage: DAILY
  23. BETHANECHOL [Concomitant]
     Indication: IMPAIRED GASTRIC EMPTYING
     Dosage: DAILY
  24. NOVOLOG [Concomitant]
     Indication: DIABETES MELLITUS
     Dosage: SLIDING SCALE BEFORE EACH MEAL
  25. LANTUS [Concomitant]
     Indication: DIABETES MELLITUS
     Dosage: IN THE MORNING
  26. ALBUTEROL [Concomitant]
     Indication: ASTHMA
     Dosage: INHALER, DAILY

REACTIONS (9)
  - Tendonitis [Not Recovered/Not Resolved]
  - Bursitis [Not Recovered/Not Resolved]
  - Arthralgia [Not Recovered/Not Resolved]
  - Musculoskeletal pain [Not Recovered/Not Resolved]
  - Myalgia [Not Recovered/Not Resolved]
  - Muscular weakness [Not Recovered/Not Resolved]
  - Pain [Not Recovered/Not Resolved]
  - Cellulitis [Not Recovered/Not Resolved]
  - Skin burning sensation [Not Recovered/Not Resolved]
